FAERS Safety Report 9683965 (Version 3)
Quarter: 2015Q1

REPORT INFORMATION
  Report Type: Spontaneous
  Country: DK (occurrence: DK)
  Receive Date: 20131112
  Receipt Date: 20150218
  Transmission Date: 20150721
  Serious: Yes (Life-Threatening, Hospitalization)
  Sender: FDA-Public Use
  Company Number: DK-TEVA-442703ISR

PATIENT
  Age: 62 Year
  Sex: Female

DRUGS (7)
  1. PINEX [Concomitant]
     Active Substance: ACETAMINOPHEN
  2. SIMVASTATIN. [Concomitant]
     Active Substance: SIMVASTATIN
  3. LERCATIO [Concomitant]
  4. IBUMETIN [Concomitant]
     Active Substance: IBUPROFEN
  5. METHOTREXATE (METHOTREXATE SODIUM) [Suspect]
     Active Substance: METHOTREXATE SODIUM
     Indication: RHEUMATOID ARTHRITIS
     Dosage: 2.8571 MILLIGRAM DAILY; STRENGTH: 2.5 MG
     Route: 048
     Dates: start: 20080423, end: 201305
  6. PLAQUENIL [Suspect]
     Active Substance: HYDROXYCHLOROQUINE SULFATE
     Indication: RHEUMATOID ARTHRITIS
     Route: 048
     Dates: start: 20100730, end: 201305
  7. FURIX [Concomitant]
     Active Substance: FUROSEMIDE

REACTIONS (6)
  - Anaemia [Recovering/Resolving]
  - Haemoglobin decreased [Recovering/Resolving]
  - Skin haemorrhage [Recovering/Resolving]
  - Bone marrow toxicity [Recovering/Resolving]
  - Mouth ulceration [Recovering/Resolving]
  - Thrombocytopenia [Recovering/Resolving]

NARRATIVE: CASE EVENT DATE: 20130501
